FAERS Safety Report 11659634 (Version 2)
Quarter: 2016Q1

REPORT INFORMATION
  Report Type: Spontaneous
  Country: US (occurrence: US)
  Receive Date: 20151026
  Receipt Date: 20160308
  Transmission Date: 20160525
  Serious: Yes (Other)
  Sender: FDA-Public Use
  Company Number: US-ASTELLAS-2015US039112

PATIENT
  Sex: Male

DRUGS (1)
  1. XTANDI [Suspect]
     Active Substance: ENZALUTAMIDE
     Indication: PROSTATE CANCER
     Dosage: 160 MG, ONCE DAILY BY MOUTH
     Route: 048
     Dates: end: 20151204

REACTIONS (4)
  - Brain neoplasm [Unknown]
  - Neoplasm [Unknown]
  - Cerebrovascular accident [Unknown]
  - Malignant neoplasm progression [Unknown]
